FAERS Safety Report 18575462 (Version 1)
Quarter: 2020Q4

REPORT INFORMATION
  Report Type: Spontaneous
  Country: CN (occurrence: CN)
  Receive Date: 20201203
  Receipt Date: 20201203
  Transmission Date: 20210114
  Serious: Yes (Other)
  Sender: FDA-Public Use
  Company Number: CN-GLAXOSMITHKLINE-CN2020APC233903

PATIENT
  Age: 45 Year
  Sex: Male
  Weight: 45 kg

DRUGS (4)
  1. VALPROATE SODIUM. [Suspect]
     Active Substance: VALPROATE SODIUM
     Indication: PRODUCT USED FOR UNKNOWN INDICATION
     Dosage: UNK
  2. VALPROIC ACID. [Suspect]
     Active Substance: VALPROIC ACID
     Indication: PRODUCT USED FOR UNKNOWN INDICATION
     Dosage: 500 MG, BID
     Route: 048
  3. LEVETIRACETAM XR [Suspect]
     Active Substance: LEVETIRACETAM
     Indication: EPILEPSY
     Dosage: UNK
  4. LAMOTRIGINE. [Suspect]
     Active Substance: LAMOTRIGINE
     Indication: EPILEPSY
     Dosage: 100 MG, BID
     Route: 048
     Dates: start: 20201023, end: 20201122

REACTIONS (13)
  - Mouth ulceration [Unknown]
  - Erythema [Unknown]
  - Pyrexia [Unknown]
  - Poor quality sleep [Unknown]
  - Rash [Unknown]
  - Pulmonary mass [Unknown]
  - Purpura [Unknown]
  - Pneumonia [Unknown]
  - Oral mucosa erosion [Unknown]
  - Mental disorder [Unknown]
  - Inadequate diet [Unknown]
  - Platelet count decreased [Unknown]
  - General physical health deterioration [Unknown]

NARRATIVE: CASE EVENT DATE: 20201115
